FAERS Safety Report 5564169-8 (Version None)
Quarter: 2007Q4

REPORT INFORMATION
  Report Type: 
  Country: None (occurrence: None)
  Receive Date: 20071217
  Receipt Date: 20071205
  Transmission Date: 20080405
  Serious: Yes (Other)
  Sender: FDA-Public Use
  Company Number: GB-PFIZER INC-2007104259

PATIENT
  Age: 55 Year
  Sex: Female
  Weight: 67.8 kg

DRUGS (3)
  1. CHAMPIX [Suspect]
     Indication: SMOKING CESSATION THERAPY
     Route: 048
     Dates: start: 20071029, end: 20071104
  2. COMBIVENT [Concomitant]
     Route: 055
  3. SERETIDE [Concomitant]
     Route: 055

REACTIONS (3)
  - DYSGEUSIA [None]
  - LIP SWELLING [None]
  - LYMPHADENOPATHY [None]
